FAERS Safety Report 9074003 (Version 1)
Quarter: 2013Q1

REPORT INFORMATION
  Report Type: Report from Study
  Country: US (occurrence: US)
  Receive Date: 20130129
  Receipt Date: 20130129
  Transmission Date: 20140127
  Serious: No
  Sender: FDA-Public Use
  Company Number: US-ABBOTT-12P-163-0918038-00

PATIENT
  Age: 51 Year
  Sex: Male

DRUGS (5)
  1. HUMIRA 40 MG/0.8 ML PEN [Suspect]
     Indication: PSORIASIS
     Dosage: 80 MG LOADING DOSE, SHIPPED/ADMINISTERED 40 MG
     Dates: start: 20120303
  2. HUMIRA 40 MG/0.8 ML PEN [Suspect]
     Dosage: REPEATED 80MG LOADING DOSE
     Dates: start: 20120330
  3. LEVOTHYROXINE [Concomitant]
     Indication: THYROID DISORDER
     Dosage: 0.025 MG DAILY
  4. METFORMIN [Concomitant]
     Indication: GLUCOSE TOLERANCE IMPAIRED
     Dosage: 500 MG DAILY
  5. UNKNOWN VITAMINS [Concomitant]
     Indication: PRODUCT USED FOR UNKNOWN INDICATION

REACTIONS (6)
  - Drug dispensing error [Unknown]
  - Incorrect dose administered [Unknown]
  - Wrong technique in drug usage process [Recovering/Resolving]
  - Injection site bruising [Recovering/Resolving]
  - Lip infection [Recovering/Resolving]
  - Oral herpes [Recovered/Resolved]
